FAERS Safety Report 8069268-7 (Version None)
Quarter: 2012Q1

REPORT INFORMATION
  Report Type: 
  Country: None (occurrence: None)
  Receive Date: 20120125
  Receipt Date: 20120120
  Transmission Date: 20120608
  Serious: Yes (Other)
  Sender: FDA-Public Use
  Company Number: US-JNJFOC-20120109309

PATIENT
  Sex: Female
  Weight: 111.13 kg

DRUGS (6)
  1. DIOVAN [Concomitant]
     Indication: HYPERTENSION
     Dosage: 320/25MG  TABLET DAILY
     Route: 048
     Dates: start: 20070101
  2. SIMPONI [Suspect]
     Route: 058
     Dates: start: 20101001, end: 20111101
  3. ALPRAZOLAM [Concomitant]
     Indication: ANXIETY
     Route: 048
     Dates: start: 20080101, end: 20111001
  4. SIMPONI [Suspect]
     Indication: RHEUMATOID ARTHRITIS
     Route: 058
     Dates: start: 20120120
  5. METHOTREXATE [Concomitant]
     Indication: ARTHRITIS
     Route: 048
     Dates: start: 20070101
  6. TOPROL-XL [Concomitant]
     Indication: HYPERTENSION
     Route: 048
     Dates: start: 20060101

REACTIONS (5)
  - BLADDER PROLAPSE [None]
  - UTERINE PROLAPSE [None]
  - INSOMNIA [None]
  - DEVICE FAILURE [None]
  - ANXIETY [None]
